FAERS Safety Report 15244441 (Version 1)
Quarter: 2018Q3

REPORT INFORMATION
  Report Type: Spontaneous
  Country: US (occurrence: US)
  Receive Date: 20180712
  Receipt Date: 20180712
  Transmission Date: 20181010
  Serious: Yes (Hospitalization)
  Sender: FDA-Public Use
  Company Number: None

PATIENT
  Age: 53 Year
  Sex: Male
  Weight: 65.6 kg

DRUGS (1)
  1. CISPLATIN. [Suspect]
     Active Substance: CISPLATIN
     Dates: end: 20180530

REACTIONS (4)
  - Acute kidney injury [None]
  - Cough [None]
  - Vomiting [None]
  - Blood pressure increased [None]

NARRATIVE: CASE EVENT DATE: 20180625
